FAERS Safety Report 5507153-2 (Version None)
Quarter: 2007Q4

REPORT INFORMATION
  Report Type: 
  Country: None (occurrence: None)
  Receive Date: 20071102
  Receipt Date: 20071023
  Transmission Date: 20080405
  Serious: Yes (Hospitalization)
  Sender: FDA-Public Use
  Company Number: 2007-04752

PATIENT
  Age: 50 Year
  Sex: Male

DRUGS (4)
  1. CEFAZOLIN SODIUM [Suspect]
     Indication: KNEE ARTHROPLASTY
     Dosage: SEE IMAGE
     Route: 042
  2. ENOXAPARIN SODIUM [Concomitant]
  3. MORPHINE SULFATE [Concomitant]
  4. OXYCODONE HYDROCHLORIDE W/PARACETAMOL (PARACETAMOL) [Concomitant]

REACTIONS (3)
  - HAEMOGLOBINAEMIA [None]
  - HAEMOLYTIC ANAEMIA [None]
  - SPHEROCYTIC ANAEMIA [None]
